FAERS Safety Report 25120572 (Version 1)
Quarter: 2025Q1

REPORT INFORMATION
  Report Type: Spontaneous
  Country: US (occurrence: US)
  Receive Date: 20250325
  Receipt Date: 20250325
  Transmission Date: 20250409
  Serious: Yes (Other)
  Sender: SANOFI AVENTIS
  Company Number: US-SA-2025SA084554

PATIENT
  Age: 44 Year
  Sex: Female

DRUGS (1)
  1. DUPIXENT [Suspect]
     Active Substance: DUPILUMAB
     Indication: Dermatitis atopic
     Dosage: 300 MG, QOW
     Route: 058

REACTIONS (8)
  - Systemic lupus erythematosus [Unknown]
  - Injection site pain [Recovering/Resolving]
  - Sleep disorder due to a general medical condition [Recovering/Resolving]
  - Somnolence [Unknown]
  - Scar [Unknown]
  - Dry eye [Unknown]
  - Oral herpes [Unknown]
  - Product preparation error [Unknown]
